FAERS Safety Report 14390493 (Version 6)
Quarter: 2018Q4

REPORT INFORMATION
  Report Type: Spontaneous
  Country: BR (occurrence: BR)
  Receive Date: 20180116
  Receipt Date: 20181203
  Transmission Date: 20190204
  Serious: Yes (Hospitalization, Other)
  Sender: FDA-Public Use
  Company Number: BR-AUROBINDO-AUR-APL-2018-001469

PATIENT
  Age: 58 Year
  Sex: Male
  Weight: 84 kg

DRUGS (34)
  1. RANITIDINE. [Concomitant]
     Active Substance: RANITIDINE
     Dosage: 150 MG, TWO TIMES A DAY
     Route: 042
     Dates: start: 20171120, end: 20171122
  2. BROMOPRIDE [Concomitant]
     Active Substance: BROMOPRIDE
     Indication: DIURETIC THERAPY
     Dosage: 10 MG, 3 TIMES A DAY
     Route: 042
     Dates: start: 20171116, end: 20171122
  3. FUROSEMIDE. [Concomitant]
     Active Substance: FUROSEMIDE
     Dosage: 40 MG, TWO TIMES A DAY
     Route: 048
     Dates: start: 20171203, end: 20171204
  4. MORPHINE [Concomitant]
     Active Substance: MORPHINE
     Indication: PRODUCT USED FOR UNKNOWN INDICATION
     Dosage: 10 MG, DAILY
     Route: 042
     Dates: start: 20171119, end: 20171119
  5. MEROPENEM. [Concomitant]
     Active Substance: MEROPENEM
     Indication: ANTICOAGULANT THERAPY
     Dosage: 1 G, 3 TIMES A DAY
     Route: 058
     Dates: start: 20171123, end: 20171207
  6. CARVEDILOL. [Concomitant]
     Active Substance: CARVEDILOL
     Dosage: 12.5 MG, TWO TIMES A DAY
     Route: 048
     Dates: start: 20171208, end: 20171215
  7. RANITIDINE. [Concomitant]
     Active Substance: RANITIDINE
     Dosage: 150 MG, 3 TIMES A DAY
     Route: 042
     Dates: start: 20171205, end: 20171206
  8. FUROSEMIDE. [Concomitant]
     Active Substance: FUROSEMIDE
     Indication: DIURETIC THERAPY
     Dosage: 20 MG, TWO TIMES A DAY
     Route: 042
     Dates: start: 20171116, end: 20171203
  9. HEPARIN [Concomitant]
     Active Substance: HEPARIN SODIUM
     Dosage: 5000 UI, 3 TIMES A DAY
     Route: 058
     Dates: start: 20171126, end: 20171201
  10. MORPHINE [Concomitant]
     Active Substance: MORPHINE
     Dosage: 10 MG, PRN
     Route: 042
     Dates: start: 20171122, end: 20171122
  11. NORADRENALINE                      /00127501/ [Concomitant]
     Active Substance: NOREPINEPHRINE
     Indication: VASOPRESSIVE THERAPY
     Dosage: 20 ML, PRN
     Route: 042
     Dates: start: 20171104, end: 20171104
  12. CARVEDILOL. [Concomitant]
     Active Substance: CARVEDILOL
     Indication: DIURETIC THERAPY
     Dosage: 12.5 MG, TWO TIMES A DAY
     Dates: start: 20171116, end: 20171122
  13. DIAZEPAM. [Concomitant]
     Active Substance: DIAZEPAM
     Indication: ANXIOLYTIC THERAPY
     Dosage: 10 MG, UNK
     Route: 048
     Dates: start: 20171117, end: 20171117
  14. HEPARIN [Concomitant]
     Active Substance: HEPARIN SODIUM
     Indication: ANTICOAGULANT THERAPY
     Dosage: 5000 UI, TWO TIMES A DAY
     Route: 058
     Dates: start: 20171118, end: 20171119
  15. NITROGLYCERIN. [Concomitant]
     Active Substance: NITROGLYCERIN
     Indication: HYPOTENSION
     Dosage: 5 ML, UNK
     Route: 042
     Dates: start: 20171119, end: 20171119
  16. SIMETHICONE (DIMETHICONE) [Concomitant]
     Active Substance: DIMETHICONE
     Dosage: 40 GTT, PRN
     Route: 048
     Dates: start: 20171122, end: 20171122
  17. DOBUTAMINE [Concomitant]
     Active Substance: DOBUTAMINE\DOBUTAMINE HYDROCHLORIDE
     Indication: VASOPRESSIVE THERAPY
     Dosage: 40 ML, PRN
     Route: 042
     Dates: start: 20171123, end: 20171203
  18. CLOPIDOGREL [Suspect]
     Active Substance: CLOPIDOGREL BISULFATE
     Indication: ANTIPLATELET THERAPY
     Dosage: 75 MG, UNK
     Route: 048
     Dates: start: 20171116
  19. VASTAREL [Concomitant]
     Active Substance: TRIMETAZIDINE DIHYDROCHLORIDE
     Indication: ISCHAEMIC HEART DISEASE PROPHYLAXIS
     Dosage: 35 MG, TWO TIMES A DAY
     Route: 048
     Dates: start: 20171117, end: 20171118
  20. SPIRONOLACTONE. [Concomitant]
     Active Substance: SPIRONOLACTONE
     Dosage: 25 UNK, UNK
     Route: 048
     Dates: start: 20171205, end: 20171215
  21. LACTULOSE. [Concomitant]
     Active Substance: LACTULOSE
     Indication: LAXATIVE SUPPORTIVE CARE
     Dosage: 20 ML, TWO TIMES A DAY
     Route: 048
     Dates: start: 20171127, end: 20171204
  22. RANITIDINE. [Concomitant]
     Active Substance: RANITIDINE
     Dosage: 50 MG, 3 TIMES A DAY
     Route: 042
     Dates: start: 20171123, end: 20171204
  23. ENALAPRIL [Concomitant]
     Active Substance: ENALAPRIL
     Indication: HYPERTENSION
     Dosage: 5 MG, UNK
     Route: 048
     Dates: start: 20171120, end: 20171122
  24. SPIRONOLACTONE. [Concomitant]
     Active Substance: SPIRONOLACTONE
     Indication: DIURETIC THERAPY
     Dosage: 25 MG, UNK
     Route: 048
     Dates: start: 20171120, end: 20171122
  25. RANITIDINE. [Concomitant]
     Active Substance: RANITIDINE
     Indication: ULCER
     Dosage: 50 MG, 3 TIMES A DAY
     Route: 042
     Dates: start: 20171116, end: 20171119
  26. ACETYLSALICYLIC ACID [Concomitant]
     Active Substance: ASPIRIN
     Indication: ANTIPLATELET THERAPY
     Dosage: 100 MG, UNK
     Route: 048
     Dates: start: 20171116, end: 20171215
  27. CLOPIDOGREL [Concomitant]
     Active Substance: CLOPIDOGREL BISULFATE
     Indication: ANTIPLATELET THERAPY
     Dosage: 75 MG, UNK
     Route: 048
     Dates: start: 20171115, end: 20171116
  28. DIAZEPAM. [Concomitant]
     Active Substance: DIAZEPAM
     Dosage: 5 MG, TWO TIMES A DAY
     Route: 048
     Dates: start: 20171120, end: 20171120
  29. HEPARIN [Concomitant]
     Active Substance: HEPARIN SODIUM
     Dosage: 1000 UI, UNK
     Route: 042
     Dates: start: 20171202, end: 20171202
  30. ENALAPRIL [Concomitant]
     Active Substance: ENALAPRIL
     Dosage: 2.5 MG, TWO TIMES A DAY
     Route: 048
     Dates: start: 20171206, end: 20171215
  31. SIMVASTATIN. [Concomitant]
     Active Substance: SIMVASTATIN
     Indication: DYSLIPIDAEMIA
     Dosage: 40 MG, UNK
     Route: 048
     Dates: start: 20171116, end: 20171215
  32. CARVEDILOL. [Concomitant]
     Active Substance: CARVEDILOL
     Dosage: 3125 MG, TWO TIMES A DAY
     Route: 048
     Dates: start: 20171205, end: 20171207
  33. HEPARIN [Concomitant]
     Active Substance: HEPARIN SODIUM
     Dosage: 7500 UI, 3 TIMES A DAY
     Dates: start: 20171123, end: 20171123
  34. HEPARIN [Concomitant]
     Active Substance: HEPARIN SODIUM
     Dosage: 5000 UI, 3 TIMES A DAY
     Route: 058
     Dates: start: 20171205, end: 20171215

REACTIONS (6)
  - Productive cough [Recovered/Resolved]
  - Septic shock [Recovered/Resolved]
  - Cardiogenic shock [Recovered/Resolved]
  - Acute pulmonary oedema [Recovered/Resolved]
  - Pulmonary congestion [Recovered/Resolved]
  - Vascular stent thrombosis [Recovered/Resolved]

NARRATIVE: CASE EVENT DATE: 20171116
